FAERS Safety Report 19599922 (Version 1)
Quarter: 2021Q3

REPORT INFORMATION
  Report Type: Report from Study
  Country: IT (occurrence: IT)
  Receive Date: 20210722
  Receipt Date: 20210722
  Transmission Date: 20211014
  Serious: No
  Sender: FDA-Public Use
  Company Number: IT-KARYOPHARM-2021KPT000586

PATIENT
  Age: 54 Year
  Sex: Male

DRUGS (1)
  1. SELINEXOR [Suspect]
     Active Substance: SELINEXOR
     Indication: NEUROFIBROSARCOMA
     Dosage: UNK
     Dates: start: 20201125, end: 20210201

REACTIONS (1)
  - Neurofibrosarcoma [Unknown]

NARRATIVE: CASE EVENT DATE: 202102
